FAERS Safety Report 8372125-X (Version None)
Quarter: 2012Q2

REPORT INFORMATION
  Report Type: 
  Country: None (occurrence: None)
  Receive Date: 20120521
  Receipt Date: 20120509
  Transmission Date: 20120825
  Serious: Yes (Hospitalization)
  Sender: FDA-Public Use
  Company Number: DE-BRISTOL-MYERS SQUIBB COMPANY-16577256

PATIENT
  Age: 47 Year
  Sex: Female
  Weight: 83 kg

DRUGS (11)
  1. LEVOTHYROXINE SODIUM [Concomitant]
     Dosage: 1DF=75 UNITS NOS
  2. FOLIC ACID [Concomitant]
  3. MINOCYCLINE HCL [Concomitant]
  4. HEXETIDINE [Concomitant]
  5. FLUOXETINE [Concomitant]
     Dosage: 1DF=20 UNITS NOS
  6. VITAMIN B-12 [Concomitant]
     Dosage: LAST DOSE ON 17APR12
  7. AMPHOTERICIN B [Concomitant]
  8. CISPLATIN [Suspect]
     Indication: NON-SMALL CELL LUNG CANCER
     Dosage: MOST RECENT INF 2ND INF: 16APR12
     Route: 042
     Dates: start: 20120326, end: 20120416
  9. GEMCITABINE [Suspect]
     Indication: NON-SMALL CELL LUNG CANCER
     Dosage: 1 + DAY 8 OF EACH 3 WEEK CYC. MOST RECENT INF: 4TH INF 23APR12
     Route: 042
     Dates: start: 20120326, end: 20120423
  10. ZIPRASIDONE HCL [Concomitant]
     Dosage: 1DF=80 UNITS NOS
  11. CETUXIMAB [Suspect]
     Indication: NON-SMALL CELL LUNG CANCER
     Dosage: FORM: 5MG/ML. MOST RECENT 5TH INF: 30APR12
     Route: 042
     Dates: start: 20120326, end: 20120430

REACTIONS (1)
  - AORTIC THROMBOSIS [None]
